FAERS Safety Report 8094733-6 (Version None)
Quarter: 2012Q1

REPORT INFORMATION
  Report Type: 
  Country: None (occurrence: None)
  Receive Date: 20120129
  Receipt Date: 20111212
  Transmission Date: 20120608
  Serious: No
  Sender: FDA-Public Use
  Company Number: US-ABBOTT-11P-163-0882673-00

PATIENT
  Sex: Male

DRUGS (3)
  1. COLAZAL [Suspect]
     Indication: PRODUCT USED FOR UNKNOWN INDICATION
  2. HUMIRA [Suspect]
     Indication: CROHN'S DISEASE
  3. ASACOL [Suspect]
     Indication: PRODUCT USED FOR UNKNOWN INDICATION

REACTIONS (4)
  - POOR QUALITY DRUG ADMINISTERED [None]
  - CROHN'S DISEASE [None]
  - DRUG INEFFECTIVE [None]
  - INCORRECT STORAGE OF DRUG [None]
